FAERS Safety Report 8997336 (Version 1)
Quarter: 2013Q1

REPORT INFORMATION
  Report Type: Spontaneous
  Country: US (occurrence: US)
  Receive Date: 20130104
  Receipt Date: 20130104
  Transmission Date: 20140127
  Serious: No
  Sender: FDA-Public Use
  Company Number: US-PFIZER INC-2013001953

PATIENT
  Age: 48 Year
  Sex: Female
  Weight: 86.17 kg

DRUGS (9)
  1. LYRICA [Suspect]
     Indication: MUSCULOSKELETAL STIFFNESS
     Dosage: 100 MG, 3X/DAY
     Route: 048
  2. LYRICA [Suspect]
     Indication: ARTHRALGIA
  3. LYRICA [Suspect]
     Indication: BACK PAIN
  4. SYNTHROID [Concomitant]
     Dosage: 100 MG, 1X/DAY
  5. DOXEPIN [Concomitant]
     Dosage: 50 MG, 1X/DAY
  6. CITALOPRAM [Concomitant]
     Dosage: 40 MG, 1X/DAY
  7. PRAVASTATIN [Concomitant]
     Dosage: 40 MG
  8. METFORMIN [Concomitant]
     Indication: DIABETES PROPHYLAXIS
     Dosage: 500 MG
  9. TIZANIDINE [Concomitant]
     Dosage: 4 MG, 1X/DAY

REACTIONS (2)
  - Drug ineffective [Unknown]
  - Pain [Unknown]
